FAERS Safety Report 6232821-7 (Version None)
Quarter: 2009Q2

REPORT INFORMATION
  Report Type: 
  Country: None (occurrence: None)
  Receive Date: 20090612
  Receipt Date: 20090612
  Transmission Date: 20091009
  Serious: Yes (Other)
  Sender: FDA-Public Use
  Company Number: None

PATIENT
  Age: 34 Year
  Sex: Female
  Weight: 86.1834 kg

DRUGS (2)
  1. CYMBALTA [Suspect]
     Indication: ANXIETY
     Dosage: 20-60MG ONCE DAILY PO
     Route: 048
     Dates: start: 20080301, end: 20090601
  2. CYMBALTA [Suspect]
     Indication: DEPRESSION
     Dosage: 20-60MG ONCE DAILY PO
     Route: 048
     Dates: start: 20080301, end: 20090601

REACTIONS (11)
  - ANGER [None]
  - CRYING [None]
  - DEPRESSED MOOD [None]
  - DIZZINESS [None]
  - DRUG WITHDRAWAL SYNDROME [None]
  - FEELING ABNORMAL [None]
  - HOT FLUSH [None]
  - MOOD ALTERED [None]
  - PAIN [None]
  - TINNITUS [None]
  - WEIGHT INCREASED [None]
